FAERS Safety Report 7880975-9 (Version None)
Quarter: 2011Q4

REPORT INFORMATION
  Report Type: 
  Country: None (occurrence: None)
  Receive Date: 20111101
  Receipt Date: 20111017
  Transmission Date: 20120403
  Serious: Yes (Death, Hospitalization)
  Sender: FDA-Public Use
  Company Number: US-ARROW GEN-2011-17789

PATIENT
  Age: 77 Year
  Sex: Female

DRUGS (2)
  1. CYCLOSPORINE [Suspect]
     Indication: RENAL TRANSPLANT
  2. TACROLIMUS [Suspect]

REACTIONS (5)
  - CARDIOPULMONARY FAILURE [None]
  - CARDIAC FAILURE CONGESTIVE [None]
  - ORGANISING PNEUMONIA [None]
  - CONDITION AGGRAVATED [None]
  - DIARRHOEA [None]
